FAERS Safety Report 24544038 (Version 1)
Quarter: 2024Q4

REPORT INFORMATION
  Report Type: Report from Study
  Country: KW (occurrence: KW)
  Receive Date: 20241024
  Receipt Date: 20241024
  Transmission Date: 20250114
  Serious: Yes (Other)
  Sender: NOVARTIS
  Company Number: KW-002147023-NVSC2024KW206794

PATIENT
  Age: 49 Year
  Sex: Female

DRUGS (1)
  1. AFINITOR [Suspect]
     Active Substance: EVEROLIMUS
     Indication: Breast cancer metastatic
     Dosage: 5 MG, QD
     Route: 048
     Dates: start: 20240827, end: 20241001

REACTIONS (1)
  - Hepatomegaly [Not Recovered/Not Resolved]

NARRATIVE: CASE EVENT DATE: 20240901
